FAERS Safety Report 5711087-8 (Version None)
Quarter: 2008Q2

REPORT INFORMATION
  Report Type: 
  Country: None (occurrence: None)
  Receive Date: 20080421
  Receipt Date: 20080408
  Transmission Date: 20081010
  Serious: Yes (Other)
  Sender: FDA-Public Use
  Company Number: US-JNJFOC-20080402519

PATIENT
  Sex: Female
  Weight: 58.97 kg

DRUGS (3)
  1. REMICADE [Suspect]
     Indication: ANKYLOSING SPONDYLITIS
     Route: 042
  2. AMITRIPTYLINE HCL [Concomitant]
     Indication: SLEEP DISORDER THERAPY
     Dosage: 19 YEARS
  3. CLONAZEPAM [Concomitant]
     Indication: ANXIETY

REACTIONS (7)
  - CONJUNCTIVITIS INFECTIVE [None]
  - DIZZINESS [None]
  - ENDOMETRIOSIS [None]
  - HAEMORRHAGE [None]
  - PAIN [None]
  - URINARY TRACT INFECTION [None]
  - WEIGHT DECREASED [None]
